FAERS Safety Report 5274069-9 (Version None)
Quarter: 2007Q1

REPORT INFORMATION
  Report Type: 
  Country: None (occurrence: None)
  Receive Date: 20070323
  Receipt Date: 20070313
  Transmission Date: 20070707
  Serious: Yes (Hospitalization)
  Sender: FDA-Public Use
  Company Number: GB-MERCK-0703GBR00075

PATIENT
  Age: 19 Year
  Sex: Female

DRUGS (2)
  1. MAXALT [Suspect]
     Route: 048
  2. FLUOXETINE [Suspect]
     Route: 065

REACTIONS (2)
  - DRUG INTERACTION [None]
  - SEROTONIN SYNDROME [None]
